FAERS Safety Report 7315911-7 (Version None)
Quarter: 2011Q1

REPORT INFORMATION
  Report Type: 
  Country: None (occurrence: None)
  Receive Date: 20110225
  Receipt Date: 20110216
  Transmission Date: 20110831
  Serious: Yes (Other)
  Sender: FDA-Public Use
  Company Number: AT-ASTRAZENECA-2011SE05381

PATIENT
  Age: 29661 Day
  Sex: Female
  Weight: 75 kg

DRUGS (9)
  1. PLAVIX [Concomitant]
  2. LOFTYL [Concomitant]
  3. CRESTOR [Concomitant]
  4. SYMBICORT [Suspect]
     Indication: ASTHMA
     Dosage: 3 STROKES
     Route: 055
     Dates: start: 20110117, end: 20110121
  5. ENALAPRIL MALEATE [Concomitant]
  6. AMLODIPINE [Concomitant]
  7. CO RENITEC [Concomitant]
  8. NEXIUM [Concomitant]
  9. DICLOFENAC SODIUM [Concomitant]

REACTIONS (2)
  - DYSPNOEA [None]
  - PALPITATIONS [None]
